FAERS Safety Report 6151902-X (Version None)
Quarter: 2009Q2

REPORT INFORMATION
  Report Type: 
  Country: None (occurrence: None)
  Receive Date: 20090410
  Receipt Date: 20090407
  Transmission Date: 20091009
  Serious: Yes (Death, Other)
  Sender: FDA-Public Use
  Company Number: US-MERCK-0904USA00935

PATIENT
  Age: 73 Year
  Sex: Male

DRUGS (12)
  1. DECADRON [Suspect]
     Indication: MULTIPLE MYELOMA
     Route: 065
  2. REVLIMID [Suspect]
     Indication: MULTIPLE MYELOMA
     Route: 048
     Dates: start: 20080421, end: 20080905
  3. FOLIC ACID [Suspect]
     Route: 065
  4. COUMADIN [Concomitant]
     Indication: HYPERVISCOSITY SYNDROME
     Route: 065
  5. NORVASC [Concomitant]
     Route: 065
  6. ROCALTROL [Concomitant]
     Route: 065
  7. PHOSLO [Concomitant]
     Route: 065
  8. COLACE [Concomitant]
     Route: 065
  9. PROCRIT [Concomitant]
     Route: 065
  10. THERAGRAN TABLETS ADVANCED FORMULA [Concomitant]
     Route: 065
  11. PROTONIX [Concomitant]
     Route: 065
  12. NEPHRO-VITE RX [Concomitant]
     Route: 065

REACTIONS (8)
  - BLADDER PERFORATION [None]
  - COAGULOPATHY [None]
  - HYPERVISCOSITY SYNDROME [None]
  - HYPONATRAEMIA [None]
  - RENAL FAILURE ACUTE [None]
  - RESPIRATORY FAILURE [None]
  - SUBDURAL HAEMATOMA [None]
  - UROGENITAL HAEMORRHAGE [None]
